FAERS Safety Report 10244587 (Version 2)
Quarter: 2014Q3

REPORT INFORMATION
  Report Type: Spontaneous
  Country: US (occurrence: US)
  Receive Date: 20140618
  Receipt Date: 20140813
  Transmission Date: 20150326
  Serious: Yes (Other)
  Sender: FDA-Public Use
  Company Number: US-GLAXOSMITHKLINE-A1076943A

PATIENT
  Age: 68 Year
  Sex: Male
  Weight: 78.6 kg

DRUGS (6)
  1. IRON [Concomitant]
     Active Substance: IRON
  2. SUTENT [Suspect]
     Active Substance: SUNITINIB MALATE
     Indication: PRODUCT USED FOR UNKNOWN INDICATION
     Dosage: 20MG UNKNOWN
     Dates: end: 2012
  3. LIPITOR [Concomitant]
     Active Substance: ATORVASTATIN CALCIUM
  4. VOTRIENT [Suspect]
     Active Substance: PAZOPANIB HYDROCHLORIDE
     Indication: HEPATIC NEOPLASM
     Dosage: 4TAB PER DAY
     Route: 048
     Dates: start: 2012, end: 20140605
  5. THYROID MEDICATION [Concomitant]
     Active Substance: UNSPECIFIED INGREDIENT
  6. HIGH BLOOD PRESSURE PILL [Concomitant]

REACTIONS (11)
  - Diabetes mellitus [Recovering/Resolving]
  - Eye haemorrhage [Recovering/Resolving]
  - Neoplasm [Recovering/Resolving]
  - Blindness unilateral [Recovering/Resolving]
  - Abdominal discomfort [Recovering/Resolving]
  - Diarrhoea [Recovering/Resolving]
  - Drug ineffective [Unknown]
  - Optic ischaemic neuropathy [Recovering/Resolving]
  - Blood glucose decreased [Recovering/Resolving]
  - Renal disorder [Recovering/Resolving]
  - Blood pressure increased [Recovering/Resolving]

NARRATIVE: CASE EVENT DATE: 2012
